FAERS Safety Report 9540324 (Version 2)
Quarter: 2014Q1

REPORT INFORMATION
  Report Type: Spontaneous
  Country: IT (occurrence: None)
  Receive Date: 20130917
  Receipt Date: 20140203
  Transmission Date: 20141002
  Serious: Yes (Hospitalization)
  Sender: FDA-Public Use
  Company Number: 2013AP007984

PATIENT
  Age: 41 Year
  Sex: Female

DRUGS (3)
  1. TOPIRAMATE [Suspect]
     Dosage: TOTAL
     Route: 048
     Dates: start: 20130627, end: 20130627
  2. EFFEXOR (VENLAFAXINE HYDROCHLORIDE) [Concomitant]
  3. TRITTICO (TRAZODONE) [Concomitant]

REACTIONS (5)
  - Dyskinesia [None]
  - Sedation [None]
  - Psychomotor skills impaired [None]
  - Overdose [None]
  - Self injurious behaviour [None]
